FAERS Safety Report 10927114 (Version 1)
Quarter: 2015Q1

REPORT INFORMATION
  Report Type: Spontaneous
  Country: US (occurrence: None)
  Receive Date: 20150316
  Receipt Date: 20150316
  Transmission Date: 20150721
  Serious: Yes (Hospitalization, Other)
  Sender: FDA-Public Use
  Company Number: 2015COR00053

PATIENT
  Age: 42 Year
  Sex: Female

DRUGS (3)
  1. CLONAZEPAM. [Suspect]
     Active Substance: CLONAZEPAM
  2. CITALOPRAM [Suspect]
     Active Substance: CITALOPRAM HYDROBROMIDE
     Dosage: ^GREATER THAN 2000 MG^
  3. TEMAZEPAM. [Suspect]
     Active Substance: TEMAZEPAM

REACTIONS (9)
  - Cardiotoxicity [None]
  - Serotonin syndrome [None]
  - Arrhythmia [None]
  - Torsade de pointes [None]
  - Blood calcium decreased [None]
  - Intentional overdose [None]
  - Unresponsive to stimuli [None]
  - Blood magnesium decreased [None]
  - Blood potassium decreased [None]
